FAERS Safety Report 21675181 (Version 2)
Quarter: 2023Q2

REPORT INFORMATION
  Report Type: Spontaneous
  Country: US (occurrence: US)
  Receive Date: 20221202
  Receipt Date: 20230503
  Transmission Date: 20230722
  Serious: Yes (Other)
  Sender: FDA-Public Use
  Company Number: US-PFIZER INC-PV202200114167

PATIENT
  Age: 66 Year
  Sex: Female

DRUGS (2)
  1. XELJANZ XR [Interacting]
     Active Substance: TOFACITINIB CITRATE
     Dosage: UNK
  2. TIZANIDINE [Interacting]
     Active Substance: TIZANIDINE
     Dosage: UNK

REACTIONS (6)
  - Oxygen saturation decreased [Unknown]
  - Influenza [Unknown]
  - Nasal congestion [Unknown]
  - Upper respiratory tract congestion [Unknown]
  - Illness [Unknown]
  - Drug interaction [Unknown]

NARRATIVE: CASE EVENT DATE: 20221101
